FAERS Safety Report 17727962 (Version 1)
Quarter: 2020Q2

REPORT INFORMATION
  Report Type: Spontaneous
  Country: US (occurrence: US)
  Receive Date: 20200430
  Receipt Date: 20200430
  Transmission Date: 20200714
  Serious: No
  Sender: FDA-Public Use
  Company Number: US-EPIHEALTH-2019-US-010854

PATIENT
  Age: 57 Year
  Sex: Female
  Weight: 93.44 kg

DRUGS (3)
  1. SITAVIG [Suspect]
     Active Substance: ACYCLOVIR
     Indication: ORAL HERPES
     Dosage: 1 TABLET BUCCAL
     Route: 048
     Dates: start: 20190605, end: 20190606
  2. WELLBUTRIN [Concomitant]
     Active Substance: BUPROPION HYDROCHLORIDE
  3. LEVOTHYROXINE. [Concomitant]
     Active Substance: LEVOTHYROXINE

REACTIONS (4)
  - Application site erythema [Not Recovered/Not Resolved]
  - Intentional product misuse [Recovered/Resolved]
  - Mouth ulceration [Not Recovered/Not Resolved]
  - Product solubility abnormal [Unknown]

NARRATIVE: CASE EVENT DATE: 20190605
